FAERS Safety Report 9807121 (Version 1)
Quarter: 2014Q1

REPORT INFORMATION
  Report Type: Report from Study
  Country: US (occurrence: US)
  Receive Date: 20140110
  Receipt Date: 20140110
  Transmission Date: 20141002
  Serious: Yes (Death)
  Sender: FDA-Public Use
  Company Number: US-ROCHE-1331866

PATIENT
  Sex: Female

DRUGS (3)
  1. AVASTIN [Suspect]
     Indication: LUNG NEOPLASM MALIGNANT
     Route: 065
     Dates: start: 20121120, end: 201212
  2. AVASTIN [Suspect]
     Indication: BONE CANCER METASTATIC
  3. GEMZAR [Concomitant]
     Route: 065

REACTIONS (1)
  - Death [Fatal]
